FAERS Safety Report 12178738 (Version 1)
Quarter: 2016Q1

REPORT INFORMATION
  Report Type: Spontaneous
  Country: US (occurrence: None)
  Receive Date: 20160314
  Receipt Date: 20160314
  Transmission Date: 20160526
  Serious: Yes (Other)
  Sender: FDA-Public Use
  Company Number: None

PATIENT
  Age: 35 Year
  Sex: Female
  Weight: 81.65 kg

DRUGS (2)
  1. CLINDAMYCIN [Suspect]
     Active Substance: CLINDAMYCIN\CLINDAMYCIN PHOSPHATE
     Indication: MASTITIS
  2. ROWASA [Concomitant]
     Active Substance: MESALAMINE

REACTIONS (2)
  - Haematochezia [None]
  - Clostridium difficile infection [None]

NARRATIVE: CASE EVENT DATE: 20160308
